FAERS Safety Report 6727773-7 (Version None)
Quarter: 2010Q2

REPORT INFORMATION
  Report Type: 
  Country: None (occurrence: None)
  Receive Date: 20100512
  Receipt Date: 20100428
  Transmission Date: 20101027
  Serious: Yes (Death)
  Sender: FDA-Public Use
  Company Number: PE-JNJFOC-20100501180

PATIENT
  Age: 72 Year
  Sex: Male

DRUGS (1)
  1. DACOGEN [Suspect]
     Indication: CHRONIC MYELOMONOCYTIC LEUKAEMIA
     Dosage: 3 DOSE(S) IN 1 TOTAL, INTRAVENOUS
     Route: 042

REACTIONS (1)
  - RENAL FAILURE [None]
